APPROVED DRUG PRODUCT: MONISTAT-DERM
Active Ingredient: MICONAZOLE NITRATE
Strength: 2%
Dosage Form/Route: LOTION;TOPICAL
Application: N017739 | Product #001
Applicant: INSIGHT PHARMACEUTICALS CORP
Approved: Approved Prior to Jan 1, 1982 | RLD: No | RS: No | Type: DISCN